FAERS Safety Report 13340571 (Version 2)
Quarter: 2017Q2

REPORT INFORMATION
  Report Type: Spontaneous
  Country: IT (occurrence: IT)
  Receive Date: 20170316
  Receipt Date: 20170404
  Transmission Date: 20170830
  Serious: Yes (Hospitalization)
  Sender: FDA-Public Use
  Company Number: IT-BAXTER-2017BAX011184

PATIENT
  Age: 73 Year

DRUGS (2)
  1. SODIO CLORURO 0,9% BAXTER [Suspect]
     Active Substance: SODIUM CHLORIDE
     Dosage: RE-INFUSION
     Route: 010
     Dates: start: 20170224
  2. SODIO CLORURO 0,9% BAXTER [Suspect]
     Active Substance: SODIUM CHLORIDE
     Indication: HAEMODIALYSIS
     Route: 010

REACTIONS (3)
  - Haemorrhage [Unknown]
  - Pallor [Unknown]
  - Dizziness [Unknown]

NARRATIVE: CASE EVENT DATE: 20170224
